FAERS Safety Report 7029491-7 (Version None)
Quarter: 2010Q4

REPORT INFORMATION
  Report Type: 
  Country: None (occurrence: None)
  Receive Date: 20101005
  Receipt Date: 20100927
  Transmission Date: 20110411
  Serious: Yes (Other)
  Sender: FDA-Public Use
  Company Number: US-AMGEN-KDL441307

PATIENT
  Sex: Male

DRUGS (8)
  1. EPOGEN [Suspect]
     Indication: RENAL FAILURE CHRONIC
  2. SENSIPAR [Suspect]
     Indication: HYPERPARATHYROIDISM SECONDARY
  3. AMBIEN [Concomitant]
  4. CALCITRIOL [Concomitant]
  5. LABETALOL HCL [Concomitant]
  6. NEPHRO-CAPS [Concomitant]
  7. OMEPRAZOLE [Concomitant]
  8. RENAGEL [Concomitant]

REACTIONS (2)
  - KIDNEY TRANSPLANT REJECTION [None]
  - THROMBOSIS [None]
